FAERS Safety Report 15106343 (Version 2)
Quarter: 2018Q3

REPORT INFORMATION
  Report Type: Spontaneous
  Country: PL (occurrence: PL)
  Receive Date: 20180704
  Receipt Date: 20180710
  Transmission Date: 20181010
  Serious: Yes (Other)
  Sender: FDA-Public Use
  Company Number: PL-PFIZER INC-2018263603

PATIENT
  Age: 68 Year
  Sex: Female

DRUGS (3)
  1. COLISTIN SULFATE [Suspect]
     Active Substance: COLISTIN SULFATE
     Indication: ANTIBIOTIC THERAPY
     Dosage: UNK
  2. IMIPENEM [Concomitant]
     Active Substance: IMIPENEM
     Indication: ANTIBIOTIC THERAPY
     Dosage: UNK
  3. VANCOMYCIN [Suspect]
     Active Substance: VANCOMYCIN
     Dosage: UNK

REACTIONS (1)
  - Acute kidney injury [Recovering/Resolving]
